FAERS Safety Report 19882253 (Version 1)
Quarter: 2021Q3

REPORT INFORMATION
  Report Type: Spontaneous
  Country: US (occurrence: US)
  Receive Date: 20210924
  Receipt Date: 20210924
  Transmission Date: 20211014
  Serious: No
  Sender: FDA-Public Use
  Company Number: US-MYLANLABS-2021M1064563

PATIENT
  Sex: Female
  Weight: 104 kg

DRUGS (1)
  1. EPIPEN [Suspect]
     Active Substance: EPINEPHRINE
     Indication: FOOD ALLERGY
     Dosage: UNK UNK, PRN (REFILL 4 TIMES A YEAR/USE IF HAVE ANAPHYLACTIC SHOCK)
     Route: 030

REACTIONS (2)
  - Liquid product physical issue [None]
  - Product quality issue [None]
